FAERS Safety Report 5453530-8 (Version None)
Quarter: 2007Q3

REPORT INFORMATION
  Report Type: 
  Country: None (occurrence: None)
  Receive Date: 20070913
  Receipt Date: 20070829
  Transmission Date: 20080115
  Serious: Yes (Disabling)
  Sender: FDA-Public Use
  Company Number: S07-SWI-03793-01

PATIENT
  Age: 43 Year
  Sex: Male

DRUGS (1)
  1. ESCITALOPRAM [Suspect]
     Indication: DEPRESSION
     Dates: start: 20070101

REACTIONS (2)
  - PHOTOPHOBIA [None]
  - XEROPHTHALMIA [None]
